FAERS Safety Report 17300811 (Version 1)
Quarter: 2020Q1

REPORT INFORMATION
  Report Type: Spontaneous
  Country: US (occurrence: US)
  Receive Date: 20200122
  Receipt Date: 20200122
  Transmission Date: 20200409
  Serious: Yes (Hospitalization)
  Sender: FDA-Public Use
  Company Number: US-009507513-2001USA004824

PATIENT
  Sex: Male

DRUGS (8)
  1. ROXICODONE [Concomitant]
     Active Substance: OXYCODONE HYDROCHLORIDE
  2. LOMOTIL (LOPERAMIDE HYDROCHLORIDE) [Concomitant]
     Active Substance: LOPERAMIDE HYDROCHLORIDE
     Dosage: UNK
  3. PANTOPRAZOLE SODIUM. [Concomitant]
     Active Substance: PANTOPRAZOLE SODIUM
     Dosage: UNK
  4. TEMODAR [Suspect]
     Active Substance: TEMOZOLOMIDE
     Indication: BRAIN NEOPLASM MALIGNANT
     Dosage: 10 MILLIGRAM (2 CAPSULES) DAILY FOR 21 DAYS EVERY 28 DAYS)
     Route: 048
     Dates: start: 201912
  5. TEMODAR [Suspect]
     Active Substance: TEMOZOLOMIDE
     Indication: BRAIN NEOPLASM MALIGNANT
     Dosage: 140 MILLIGRAM (1 CAPSULE) DAILY FOR 21 DAYS EVERY 28 DAYS
     Route: 048
     Dates: start: 201912
  6. OXCARBAZEPINE. [Concomitant]
     Active Substance: OXCARBAZEPINE
     Dosage: UNK
  7. DECADRON [Concomitant]
     Active Substance: DEXAMETHASONE
     Dosage: UNK
  8. TEMODAR [Suspect]
     Active Substance: TEMOZOLOMIDE
     Dosage: 10 MILLIGRAM (2 CAPSULES) DAILY FOR 21 DAYS EVERY 28 DAYS)
     Route: 048
     Dates: start: 201912

REACTIONS (1)
  - Adverse event [Unknown]
